FAERS Safety Report 18700753 (Version 1)
Quarter: 2021Q1

REPORT INFORMATION
  Report Type: Report from Study
  Country: BR (occurrence: BR)
  Receive Date: 20210105
  Receipt Date: 20210105
  Transmission Date: 20210419
  Serious: Yes (Other)
  Sender: FDA-Public Use
  Company Number: NVSC2020BR347245

PATIENT
  Sex: Female

DRUGS (1)
  1. TRAVATAN [Suspect]
     Active Substance: TRAVOPROST
     Indication: PRODUCT USED FOR UNKNOWN INDICATION
     Dosage: UNK
     Route: 065
     Dates: start: 2016, end: 202009

REACTIONS (5)
  - Product dose omission issue [Unknown]
  - Visual impairment [Not Recovered/Not Resolved]
  - Glaucoma [Unknown]
  - Deafness [Unknown]
  - Vision blurred [Not Recovered/Not Resolved]
